FAERS Safety Report 25918644 (Version 1)
Quarter: 2025Q4

REPORT INFORMATION
  Report Type: Spontaneous
  Country: US (occurrence: None)
  Receive Date: 20251010
  Receipt Date: 20251010
  Transmission Date: 20260118
  Serious: Yes (Hospitalization)
  Sender: FDA-CTU
  Company Number: None

PATIENT
  Age: 72 Year
  Sex: Male
  Weight: 92 kg

DRUGS (12)
  1. EMPAGLIFLOZIN [Suspect]
     Active Substance: EMPAGLIFLOZIN
     Indication: Diabetes mellitus
     Dosage: FREQUENCY : DAILY;?
     Route: 048
     Dates: end: 20251006
  2. ACETAMINOPHEN\HYDROCODONE BITARTRATE [Concomitant]
     Active Substance: ACETAMINOPHEN\HYDROCODONE BITARTRATE
  3. PANTOPRAZOLE SODIUM [Concomitant]
     Active Substance: PANTOPRAZOLE SODIUM
  4. LISINOPRIL [Concomitant]
     Active Substance: LISINOPRIL
  5. AMLODIPINE [Concomitant]
     Active Substance: AMLODIPINE BESYLATE
  6. DULOXETINE [Concomitant]
     Active Substance: DULOXETINE
  7. PREGABALIN [Concomitant]
     Active Substance: PREGABALIN
  8. SILDENAFIL [Concomitant]
     Active Substance: SILDENAFIL
  9. TAMSULOSIN [Concomitant]
     Active Substance: TAMSULOSIN
  10. FINASTERIDE [Concomitant]
     Active Substance: FINASTERIDE
  11. ATORVASTATIN [Concomitant]
     Active Substance: ATORVASTATIN
  12. INSULIN NOS [Concomitant]
     Active Substance: INSULIN NOS

REACTIONS (2)
  - Fungal test positive [None]
  - Systemic candida [None]

NARRATIVE: CASE EVENT DATE: 20251005
